FAERS Safety Report 25999926 (Version 1)
Quarter: 2025Q4

REPORT INFORMATION
  Report Type: Spontaneous
  Country: CN (occurrence: CN)
  Receive Date: 20251105
  Receipt Date: 20251105
  Transmission Date: 20260118
  Serious: Yes (Other)
  Sender: ALEXION PHARMACEUTICALS
  Company Number: CN-ASTRAZENECA-202511GLO001162CN

PATIENT
  Age: 72 Year
  Sex: Male

DRUGS (5)
  1. OSIMERTINIB [Suspect]
     Active Substance: OSIMERTINIB
     Indication: Non-small cell lung cancer
     Route: 065
  2. GEFITINIB [Suspect]
     Active Substance: GEFITINIB
     Indication: Non-small cell lung cancer
     Dosage: 250 MILLIGRAM, QD
     Route: 065
     Dates: start: 20231130
  3. BEVACIZUMAB [Suspect]
     Active Substance: BEVACIZUMAB
     Indication: Non-small cell lung cancer
     Dosage: 15 MILLIGRAM/KILOGRAM, Q3W
     Route: 065
     Dates: start: 20231130
  4. PEMETREXED [Concomitant]
     Active Substance: PEMETREXED
     Indication: Non-small cell lung cancer
  5. CISPLATIN [Concomitant]
     Active Substance: CISPLATIN
     Indication: Non-small cell lung cancer

REACTIONS (10)
  - Malignant neoplasm progression [Unknown]
  - Metastases to lung [Unknown]
  - Metastases to pleura [Unknown]
  - Metastases to bone [Unknown]
  - Drug resistance [Unknown]
  - Metastases to liver [Unknown]
  - Metastases to adrenals [Unknown]
  - Metastases to peritoneum [Unknown]
  - Diarrhoea [Unknown]
  - Acquired gene mutation [Unknown]

NARRATIVE: CASE EVENT DATE: 20230801
